FAERS Safety Report 16653273 (Version 1)
Quarter: 2019Q3

REPORT INFORMATION
  Report Type: Spontaneous
  Country: US (occurrence: US)
  Receive Date: 20190731
  Receipt Date: 20190731
  Transmission Date: 20191004
  Serious: No
  Sender: FDA-Public Use
  Company Number: US-TEVA-2019-US-1084180

PATIENT
  Sex: Female

DRUGS (1)
  1. BUDESONIDE. [Suspect]
     Active Substance: BUDESONIDE
     Indication: SINUSITIS
     Dosage: INHALATION SUSPENSION
     Route: 045

REACTIONS (2)
  - Thermal burn [Unknown]
  - Intentional product misuse [Unknown]
